FAERS Safety Report 8775644 (Version 3)
Quarter: 2012Q4

REPORT INFORMATION
  Report Type: 
  Country: US (occurrence: US)
  Receive Date: 20120909
  Receipt Date: 20121029
  Transmission Date: 20130627
  Serious: Yes (Other)
  Sender: FDA-Public Use
  Company Number: US-009507513-1209USA000091

PATIENT

DRUGS (2)
  1. JANUVIA [Suspect]
     Route: 048
  2. METFORMIN [Suspect]

REACTIONS (1)
  - Dialysis [Unknown]
